FAERS Safety Report 23448603 (Version 1)
Quarter: 2024Q1

REPORT INFORMATION
  Report Type: Spontaneous
  Country: US (occurrence: None)
  Receive Date: 20240127
  Receipt Date: 20240127
  Transmission Date: 20240410
  Serious: Yes (Hospitalization)
  Sender: FDA-Public Use
  Company Number: 2024A018507

PATIENT
  Sex: Female

DRUGS (1)
  1. TRUQAP [Suspect]
     Active Substance: CAPIVASERTIB
     Indication: Breast cancer
     Route: 048
     Dates: start: 20240101

REACTIONS (3)
  - Hyperglycaemia [Unknown]
  - Blood creatinine increased [Unknown]
  - Product use issue [Unknown]

NARRATIVE: CASE EVENT DATE: 20240104
